FAERS Safety Report 15462683 (Version 3)
Quarter: 2018Q4

REPORT INFORMATION
  Report Type: Report from Study
  Country: FR (occurrence: FR)
  Receive Date: 20181004
  Receipt Date: 20181226
  Transmission Date: 20190204
  Serious: Yes (Other)
  Sender: FDA-Public Use
  Company Number: FR-ROCHE-2191363

PATIENT
  Age: 64 Year
  Sex: Male
  Weight: 78 kg

DRUGS (16)
  1. INNOHEP [Concomitant]
     Active Substance: TINZAPARIN SODIUM
     Route: 065
     Dates: start: 20180705, end: 201808
  2. MONOPROST [Concomitant]
     Active Substance: LATANOPROST
     Indication: GLAUCOMA
     Route: 065
     Dates: start: 20171122
  3. TENORMINE [Concomitant]
     Active Substance: ATENOLOL
     Indication: HYPERTENSION
     Route: 065
     Dates: start: 20180810
  4. FUCIDINE [Concomitant]
     Indication: PARONYCHIA
     Route: 061
     Dates: start: 20180920, end: 20181010
  5. COBIMETINIB. [Suspect]
     Active Substance: COBIMETINIB
     Indication: MALIGNANT MELANOMA
     Dosage: ON 21 DAYS ON, 7 DAYS OFF SCHEDULE OF 28 DAY CYCLE.?DATE OF MOST RECENT DOSE OF COBIMETINIB OF 60 MG
     Route: 048
     Dates: start: 20180614
  6. ATEZOLIZUMAB. [Suspect]
     Active Substance: ATEZOLIZUMAB
     Indication: MALIGNANT MELANOMA
     Dosage: DATE OF MOST RECENT DOSE OF ATEZOLIZUMAB OF 840 MG PRIOR TO SAE ONSET 06/SEP/2018
     Route: 042
     Dates: start: 20180614
  7. DIPROSALIC [Concomitant]
     Active Substance: BETAMETHASONE DIPROPIONATE
     Indication: SEBORRHOEIC DERMATITIS
     Route: 065
     Dates: start: 20180628, end: 20180823
  8. DIPROSONE [Concomitant]
     Active Substance: BETAMETHASONE DIPROPIONATE
     Indication: PARONYCHIA
     Route: 061
     Dates: start: 20180927, end: 20181010
  9. CHOLECALCIFEROL [Concomitant]
     Active Substance: CHOLECALCIFEROL
     Route: 065
     Dates: start: 201601
  10. SEBIPROX [Concomitant]
     Active Substance: CICLOPIROX OLAMINE
     Indication: SEBORRHOEIC DERMATITIS
     Route: 065
     Dates: start: 20180628
  11. OMEXEL [Concomitant]
     Active Substance: TAMSULOSIN HYDROCHLORIDE
     Indication: BENIGN PROSTATIC HYPERPLASIA
     Route: 065
     Dates: start: 201601
  12. MOTILIUM [Concomitant]
     Active Substance: DOMPERIDONE
     Indication: NAUSEA
     Route: 065
     Dates: start: 20180628, end: 20180823
  13. PREVISCAN (FRANCE) [Concomitant]
     Active Substance: FLUINDIONE
     Route: 065
     Dates: start: 20180711
  14. XYZALL [Concomitant]
     Active Substance: LEVOCETIRIZINE DIHYDROCHLORIDE
     Indication: RHINITIS ALLERGIC
     Route: 065
     Dates: start: 201601
  15. ROZEX (METRONIDAZOLE) [Concomitant]
     Active Substance: METRONIDAZOLE
     Indication: SEBORRHOEIC DERMATITIS
     Route: 065
     Dates: start: 20180808
  16. INEXIUM [Concomitant]
     Active Substance: ESOMEPRAZOLE
     Route: 065
     Dates: start: 20180921, end: 20181115

REACTIONS (1)
  - Autoimmune colitis [Recovered/Resolved]

NARRATIVE: CASE EVENT DATE: 20180915
